FAERS Safety Report 24285279 (Version 1)
Quarter: 2024Q3

REPORT INFORMATION
  Report Type: Spontaneous
  Country: IT (occurrence: IT)
  Receive Date: 20240905
  Receipt Date: 20240905
  Transmission Date: 20241016
  Serious: Yes (Other)
  Sender: RANBAXY
  Company Number: IT-SUN PHARMACEUTICAL INDUSTRIES LTD-2024RR-466070

PATIENT
  Age: 15 Year
  Sex: Male
  Weight: 30.7 kg

DRUGS (5)
  1. MORPHINE [Interacting]
     Active Substance: MORPHINE
     Indication: Procedural pain
     Dosage: 2 MILLIGRAM PER MILLILITRE
     Route: 042
  2. MORPHINE [Interacting]
     Active Substance: MORPHINE
     Dosage: 20 MICROGRAM/KILOGRAM
     Route: 037
  3. SUFENTANIL [Suspect]
     Active Substance: SUFENTANIL
     Indication: Procedural pain
     Dosage: 2 MICROGRAM/KILOGRAM
     Route: 040
  4. KETAMINE [Suspect]
     Active Substance: KETAMINE
     Indication: Procedural pain
     Dosage: 01 MILLIGRAM/KILOGRAM
     Route: 042
  5. BACLOFEN [Interacting]
     Active Substance: BACLOFEN
     Indication: Scoliosis
     Dosage: UNK
     Route: 037

REACTIONS (4)
  - Product use in unapproved indication [Unknown]
  - Sedation [Unknown]
  - Respiratory depression [Recovered/Resolved]
  - Sedation complication [Unknown]
